FAERS Safety Report 20033473 (Version 3)
Quarter: 2022Q4

REPORT INFORMATION
  Report Type: Spontaneous
  Country: HR (occurrence: HR)
  Receive Date: 20211104
  Receipt Date: 20221122
  Transmission Date: 20230113
  Serious: Yes (Hospitalization)
  Sender: FDA-Public Use
  Company Number: HR-BRISTOL-MYERS SQUIBB COMPANY-BMS-2021-114479

PATIENT
  Age: 60 Year
  Sex: Female

DRUGS (6)
  1. OPDIVO [Suspect]
     Active Substance: NIVOLUMAB
     Indication: Clear cell renal cell carcinoma
     Route: 042
     Dates: start: 202107, end: 202203
  2. YERVOY [Suspect]
     Active Substance: IPILIMUMAB
     Indication: Clear cell renal cell carcinoma
     Route: 042
     Dates: start: 202107, end: 202203
  3. BISOPROLOL FUMARATE [Concomitant]
     Active Substance: BISOPROLOL FUMARATE
     Indication: Product used for unknown indication
     Route: 065
  4. VALTRICOM [Concomitant]
     Indication: Product used for unknown indication
     Dosage: 5/160/12.5 MG
     Route: 065
  5. URAPIDIL [Concomitant]
     Active Substance: URAPIDIL
     Indication: Product used for unknown indication
     Route: 065
  6. ATORVASTATIN [Concomitant]
     Active Substance: ATORVASTATIN
     Indication: Product used for unknown indication
     Route: 065

REACTIONS (12)
  - Asthenia [Unknown]
  - Fatigue [Unknown]
  - Bone pain [Unknown]
  - Headache [Unknown]
  - Hypotension [Unknown]
  - Cortisol decreased [Unknown]
  - COVID-19 [Unknown]
  - Rash macular [Unknown]
  - Mobility decreased [Unknown]
  - Hypopituitarism [Unknown]
  - Goitre [Unknown]
  - Myositis [Unknown]

NARRATIVE: CASE EVENT DATE: 20210801
